FAERS Safety Report 12266369 (Version 3)
Quarter: 2016Q4

REPORT INFORMATION
  Report Type: Spontaneous
  Country: US (occurrence: US)
  Receive Date: 20160413
  Receipt Date: 20161010
  Transmission Date: 20170207
  Serious: Yes (Hospitalization, Other)
  Sender: FDA-Public Use
  Company Number: US-AMGEN-USASP2016045227

PATIENT
  Age: 49 Year
  Sex: Female
  Weight: 113.8 kg

DRUGS (15)
  1. CLONIDINE. [Concomitant]
     Active Substance: CLONIDINE
     Indication: HEART DISEASE CONGENITAL
     Dosage: 0.1MG TABLET BY MOUTH ONE TWO TIMES A DAY
     Route: 048
     Dates: start: 2014
  2. BENADRYL [Concomitant]
     Active Substance: DIPHENHYDRAMINE HYDROCHLORIDE
     Dosage: UNK
  3. ENBREL [Suspect]
     Active Substance: ETANERCEPT
     Dosage: UNK
     Route: 065
     Dates: end: 200501
  4. GLIPIZIDE. [Suspect]
     Active Substance: GLIPIZIDE
     Indication: PRODUCT USED FOR UNKNOWN INDICATION
     Dosage: UNK
     Route: 065
  5. AMLODIPINE [Concomitant]
     Active Substance: AMLODIPINE BESYLATE
     Dosage: 10 MG TABLET BY MOUTH ONCE A DAY AT NIGHT
     Route: 048
     Dates: start: 2014
  6. ENBREL [Suspect]
     Active Substance: ETANERCEPT
     Indication: PSORIASIS
     Dosage: UNK
     Route: 065
     Dates: start: 200408
  7. DIAZEPAM. [Concomitant]
     Active Substance: DIAZEPAM
     Indication: STRESS
  8. LYRICA [Suspect]
     Active Substance: PREGABALIN
     Indication: PAIN IN EXTREMITY
     Dosage: 50 MG CAPSULE BY MOUTH EVERY 12 HOURS
     Route: 048
     Dates: start: 20160404, end: 20160406
  9. METFORMIN [Suspect]
     Active Substance: METFORMIN HYDROCHLORIDE
     Indication: PRODUCT USED FOR UNKNOWN INDICATION
     Dosage: UNK
     Route: 065
  10. CELEBREX [Concomitant]
     Active Substance: CELECOXIB
     Indication: PSORIASIS
     Dosage: UNK
  11. TALC [Concomitant]
     Active Substance: TALC
     Dosage: UNK
  12. GABAPENTIN. [Suspect]
     Active Substance: GABAPENTIN
     Indication: PRODUCT USED FOR UNKNOWN INDICATION
     Dosage: UNK
     Route: 065
  13. MELOXCAM [Concomitant]
     Active Substance: MELOXICAM
     Indication: PSORIASIS
     Dosage: UNK
  14. METHOTREXATE. [Concomitant]
     Active Substance: METHOTREXATE
     Indication: PSORIASIS
     Dosage: UNK
  15. DIAZEPAM. [Concomitant]
     Active Substance: DIAZEPAM
     Indication: DEPRESSION
     Dosage: 5MG TABLET BY MOUTH THREE TIMES A DAY
     Route: 048
     Dates: start: 1985

REACTIONS (23)
  - Immunosuppression [Not Recovered/Not Resolved]
  - Blister [Recovering/Resolving]
  - Peripheral swelling [Recovered/Resolved]
  - Pain [Unknown]
  - Paraesthesia [Unknown]
  - Arthritis [Unknown]
  - Pollakiuria [Recovered/Resolved]
  - Lung disorder [Not Recovered/Not Resolved]
  - Hypertension [Not Recovered/Not Resolved]
  - Gait disturbance [Not Recovered/Not Resolved]
  - Asthma [Unknown]
  - Blood glucose increased [Unknown]
  - Disability [Unknown]
  - Pneumonia bacterial [Recovering/Resolving]
  - Pain in extremity [Unknown]
  - Musculoskeletal disorder [Not Recovered/Not Resolved]
  - Arthralgia [Not Recovered/Not Resolved]
  - Respiratory disorder [Not Recovered/Not Resolved]
  - Bone pain [Unknown]
  - Diabetes mellitus [Not Recovered/Not Resolved]
  - Cardiac disorder [Not Recovered/Not Resolved]
  - Psoriatic arthropathy [Not Recovered/Not Resolved]
  - Malaise [Not Recovered/Not Resolved]

NARRATIVE: CASE EVENT DATE: 2004
